FAERS Safety Report 21849425 (Version 7)
Quarter: 2024Q1

REPORT INFORMATION
  Report Type: Spontaneous
  Country: US (occurrence: US)
  Receive Date: 20230111
  Receipt Date: 20240115
  Transmission Date: 20240409
  Serious: Yes (Hospitalization)
  Sender: FDA-Public Use
  Company Number: US-PFIZER INC-PV202300004713

PATIENT
  Age: 81 Year
  Sex: Female
  Weight: 136.05 kg

DRUGS (6)
  1. TIKOSYN [Suspect]
     Active Substance: DOFETILIDE
     Indication: Atrial fibrillation
     Dosage: TAKE ONE CAPSULE BY MOUTH EVERY 12 HOURS
     Route: 048
  2. TIKOSYN [Suspect]
     Active Substance: DOFETILIDE
     Indication: Arrhythmia
     Dosage: 0.125 MG
  3. TIKOSYN [Suspect]
     Active Substance: DOFETILIDE
     Indication: Cardioversion
     Dosage: 0.250 UG, 2X/DAY
     Dates: start: 2018
  4. DOFETILIDE [Suspect]
     Active Substance: DOFETILIDE
     Dosage: TAKE ONE TABLET BY MOUTH EVERY 12 HOURS
     Route: 048
  5. METOPROLOL TARTRATE [Concomitant]
     Active Substance: METOPROLOL TARTRATE
     Indication: Cardiac disorder
     Dosage: 25 MG, 2X/DAY
  6. METOPROLOL TARTRATE [Concomitant]
     Active Substance: METOPROLOL TARTRATE
     Indication: Diabetes mellitus

REACTIONS (1)
  - Drug ineffective [Unknown]
